FAERS Safety Report 25269975 (Version 3)
Quarter: 2025Q2

REPORT INFORMATION
  Report Type: Spontaneous
  Country: US (occurrence: US)
  Receive Date: 20250505
  Receipt Date: 20250507
  Transmission Date: 20250717
  Serious: Yes (Other)
  Sender: PFIZER
  Company Number: US-PFIZER INC-202500093027

PATIENT
  Age: 11 Year
  Sex: Female

DRUGS (2)
  1. XELJANZ [Suspect]
     Active Substance: TOFACITINIB CITRATE
     Dosage: 5 ML, 2X/DAY
     Route: 048
     Dates: start: 202201
  2. CELEBREX [Concomitant]
     Active Substance: CELECOXIB

REACTIONS (4)
  - Inflammatory bowel disease [Unknown]
  - Gastrointestinal motility disorder [Unknown]
  - Spondylitis [Unknown]
  - Blood immunoglobulin G increased [Unknown]

NARRATIVE: CASE EVENT DATE: 20250301
